FAERS Safety Report 16310151 (Version 5)
Quarter: 2020Q3

REPORT INFORMATION
  Report Type: Other
  Country: CA (occurrence: CA)
  Receive Date: 20190514
  Receipt Date: 20200903
  Transmission Date: 20201102
  Serious: No
  Sender: FDA-Public Use
  Company Number: CA-ROCHE-2130233

PATIENT
  Age: 34 Year
  Sex: Female

DRUGS (4)
  1. OCREVUS [Suspect]
     Active Substance: OCRELIZUMAB
     Dosage: 600 MG EVERY 6 MONTH, ONGOING:HOLD
     Route: 042
  2. OCREVUS [Suspect]
     Active Substance: OCRELIZUMAB
     Indication: RELAPSING-REMITTING MULTIPLE SCLEROSIS
     Dosage: 300 MG AT DAY 0 AND 14, THEN 600 MG EVERY 6 MONTH
     Route: 042
     Dates: start: 20180517
  3. METRONIDAZOLE. [Concomitant]
     Active Substance: METRONIDAZOLE
     Dosage: FOR ONE WEEK
  4. TOPIRAMATE. [Concomitant]
     Active Substance: TOPIRAMATE

REACTIONS (7)
  - Oedema [Recovering/Resolving]
  - Neuralgia [Not Recovered/Not Resolved]
  - Dysuria [Not Recovered/Not Resolved]
  - Paraesthesia [Recovering/Resolving]
  - Fungal infection [Unknown]
  - Pain [Recovering/Resolving]
  - Contusion [Recovering/Resolving]

NARRATIVE: CASE EVENT DATE: 20180523
